FAERS Safety Report 5451017-X (Version None)
Quarter: 2007Q3

REPORT INFORMATION
  Report Type: 
  Country: None (occurrence: None)
  Receive Date: 20070911
  Receipt Date: 20070822
  Transmission Date: 20080115
  Serious: Yes (Hospitalization)
  Sender: FDA-Public Use
  Company Number: 6037154

PATIENT
  Age: 79 Year
  Sex: Female

DRUGS (4)
  1. BISOPROLOL (TABLET) (BISOPROLOL) [Suspect]
     Indication: CARDIAC DISORDER
  2. ASPIRIN [Concomitant]
  3. CLOPIDOGREL [Concomitant]
  4. STATIN (TIABENDAZOLE) [Concomitant]

REACTIONS (3)
  - ACUTE GENERALISED EXANTHEMATOUS PUSTULOSIS [None]
  - DRUG ERUPTION [None]
  - PUSTULAR PSORIASIS [None]
